FAERS Safety Report 14617410 (Version 14)
Quarter: 2021Q2

REPORT INFORMATION
  Report Type: Spontaneous
  Country: FR (occurrence: FR)
  Receive Date: 20180309
  Receipt Date: 20210423
  Transmission Date: 20210716
  Serious: Yes (Life-Threatening)
  Sender: FDA-Public Use
  Company Number: FR-009507513-1803FRA002621

PATIENT
  Age: 77 Year
  Sex: Male

DRUGS (22)
  1. LYRICA [Suspect]
     Active Substance: PREGABALIN
     Indication: PRODUCT ADMINISTRATION ERROR
     Dosage: 25 MG,UNK
     Route: 048
     Dates: start: 20180212, end: 20180212
  2. KARDEGIC [Suspect]
     Active Substance: ASPIRIN DL-LYSINE
     Indication: MYOCARDIAL ISCHAEMIA
     Dosage: SAUF 18/02/2012 + 75MG
     Route: 048
     Dates: start: 20120218
  3. ATORVASTATIN [Concomitant]
     Active Substance: ATORVASTATIN
     Indication: DYSLIPIDAEMIA
     Dosage: 20 MG, QD
     Route: 048
  4. ENTRESTO [Concomitant]
     Active Substance: SACUBITRIL\VALSARTAN
     Indication: CARDIAC FAILURE
     Dosage: 2 DF, QD
     Route: 048
     Dates: end: 20180206
  5. ATENOLOL. [Suspect]
     Active Substance: ATENOLOL
     Indication: PRODUCT ADMINISTRATION ERROR
     Dosage: 7.5 MG,UNK
     Route: 048
     Dates: start: 20180212, end: 20180212
  6. METFORMIN HYDROCHLORIDE. [Concomitant]
     Active Substance: METFORMIN HYDROCHLORIDE
     Indication: TYPE 2 DIABETES MELLITUS
     Dosage: 500 MG, TID
     Route: 048
  7. STILNOX [Concomitant]
     Active Substance: ZOLPIDEM TARTRATE
     Indication: SLEEP DISORDER
     Dosage: 10 MG,QD
     Route: 048
     Dates: end: 20180211
  8. DIFFU?K [Suspect]
     Active Substance: POTASSIUM CHLORIDE
     Indication: HYPOKALAEMIA
     Dosage: 600 MG ON 12/02/2018 1800 MG, TID
     Route: 048
     Dates: start: 20180206, end: 20180212
  9. DIFFU?K [Suspect]
     Active Substance: POTASSIUM CHLORIDE
     Dosage: 600 MG, UNK
     Route: 048
     Dates: start: 20180212
  10. OXYBUTYNIN. [Suspect]
     Active Substance: OXYBUTYNIN CHLORIDE
     Indication: PRODUCT ADMINISTRATION ERROR
     Dosage: 5 MG,UNK
     Route: 048
     Dates: start: 20180212, end: 20180212
  11. NOVORAPID [Suspect]
     Active Substance: INSULIN ASPART
     Indication: DIABETES MELLITUS
     Dosage: AS NEEDED
     Route: 058
     Dates: start: 20180206
  12. BISOCE [Suspect]
     Active Substance: BISOPROLOL
     Indication: MYOCARDIAL ISCHAEMIA
     Dosage: 1.25 MG, DAILY
     Route: 048
     Dates: end: 20180213
  13. ALLOPURINOL. [Concomitant]
     Active Substance: ALLOPURINOL
     Dosage: 100 MG, QD
     Route: 048
  14. JANUVIA [Suspect]
     Active Substance: SITAGLIPTIN PHOSPHATE
     Indication: TYPE 2 DIABETES MELLITUS
     Dosage: 50 MG QD
     Route: 048
     Dates: start: 20180208
  15. RAMIPRIL. [Suspect]
     Active Substance: RAMIPRIL
     Indication: PRODUCT ADMINISTRATION ERROR
     Dosage: 2.5 MG,UNK
     Route: 048
     Dates: start: 20180212, end: 20180212
  16. KARDEGIC [Suspect]
     Active Substance: ASPIRIN DL-LYSINE
     Dosage: EXCEPT 18/02/2012 + 75MG
     Route: 048
     Dates: start: 20120218
  17. FUROSEMIDE. [Suspect]
     Active Substance: FUROSEMIDE
     Indication: CARDIAC FAILURE
     Dosage: 40 MG, DAILY
     Route: 048
     Dates: start: 20180209, end: 20180216
  18. FUROSEMIDE. [Suspect]
     Active Substance: FUROSEMIDE
     Dosage: +40 MG ON 12/02/2018
     Dates: start: 20180212
  19. NOVORAPID [Suspect]
     Active Substance: INSULIN ASPART
     Dosage: UNK, PRN (ACCORDING TO NEEDED)
     Route: 058
     Dates: start: 20180208
  20. LOXEN [NICARDIPINE HYDROCHLORIDE] [Suspect]
     Active Substance: NICARDIPINE HYDROCHLORIDE
     Indication: PRODUCT ADMINISTRATION ERROR
     Dosage: 50 MG, UNK
     Route: 048
     Dates: start: 20180212, end: 20180212
  21. ENTRESTO [Concomitant]
     Active Substance: SACUBITRIL\VALSARTAN
     Dosage: 1 DF, CYCLIC (ONCE EVERY 2 DAYS)
     Route: 048
     Dates: end: 20180206
  22. ALLOPURINOL. [Concomitant]
     Active Substance: ALLOPURINOL
     Indication: PRODUCT USED FOR UNKNOWN INDICATION
     Dosage: 100 MG, QD
     Route: 048

REACTIONS (4)
  - Cardiac output decreased [Not Recovered/Not Resolved]
  - Cardiac failure [Not Recovered/Not Resolved]
  - Cardiovascular insufficiency [Not Recovered/Not Resolved]
  - Confusional state [Recovered/Resolved]

NARRATIVE: CASE EVENT DATE: 20180212
